FAERS Safety Report 8587216-8 (Version None)
Quarter: 2012Q3

REPORT INFORMATION
  Report Type: 
  Country: None (occurrence: None)
  Receive Date: 20120810
  Receipt Date: 20110801
  Transmission Date: 20120928
  Serious: No
  Sender: FDA-Public Use
  Company Number: US-ASTRAZENECA-2011SE45928

PATIENT
  Age: 85 Year
  Sex: Female

DRUGS (4)
  1. PLAVIX [Concomitant]
  2. NITROGLYCERIN [Concomitant]
  3. ARIMIDEX [Suspect]
     Indication: BREAST CANCER
     Route: 048
     Dates: start: 20080920, end: 20110701
  4. NITROGLYCERIN TABLET [Concomitant]

REACTIONS (4)
  - CRYING [None]
  - DRUG DOSE OMISSION [None]
  - FEAR [None]
  - APHAGIA [None]
